FAERS Safety Report 12410107 (Version 1)
Quarter: 2016Q2

REPORT INFORMATION
  Report Type: Spontaneous
  Country: US (occurrence: US)
  Receive Date: 20160527
  Receipt Date: 20160527
  Transmission Date: 20160815
  Serious: No
  Sender: FDA-Public Use
  Company Number: PHEH2016US012711

PATIENT
  Age: 69 Year
  Sex: Female
  Weight: 84.6 kg

DRUGS (1)
  1. JADENU [Suspect]
     Active Substance: DEFERASIROX
     Indication: MYELODYSPLASTIC SYNDROME
     Dosage: 14 MG/KG, QD (360 MG TAB, QD AND 180 MG TAB, QD TOTAL DOSE 1260 MG, QD)
     Route: 048
     Dates: start: 20151203, end: 20160505

REACTIONS (2)
  - Serum ferritin increased [Unknown]
  - Hepatic enzyme increased [Recovering/Resolving]

NARRATIVE: CASE EVENT DATE: 20160419
